FAERS Safety Report 10803425 (Version 1)
Quarter: 2015Q1

REPORT INFORMATION
  Report Type: Report from Study
  Country: US (occurrence: US)
  Receive Date: 20150217
  Receipt Date: 20150217
  Transmission Date: 20150721
  Serious: Yes (Death)
  Sender: FDA-Public Use
  Company Number: US-PFIZER INC-2015060168

PATIENT

DRUGS (17)
  1. METHOTREXATE SODIUM. [Suspect]
     Active Substance: METHOTREXATE SODIUM
     Indication: MANTLE CELL LYMPHOMA
     Dosage: 200 MG/M2, CYCLIC (OVER 2 HRS DAY 2)
     Route: 042
  2. RITUXIMAB [Suspect]
     Active Substance: RITUXIMAB
     Indication: MANTLE CELL LYMPHOMA
     Dosage: 375 MG/M2, CYCLIC (ON DAY 1)
  3. VINCRISTINE [Suspect]
     Active Substance: VINCRISTINE
     Indication: MANTLE CELL LYMPHOMA
     Dosage: 1.4 MG/M2, CYCLIC (DAY 12 OF EACH CYCLE)
     Route: 042
  4. FOLINIC ACID [Concomitant]
     Active Substance: LEUCOVORIN
     Dosage: 15 MG, 4X/DAY (FOR EIGHT DOSES)
     Route: 048
  5. CYCLOPHOSPHAMIDE. [Suspect]
     Active Substance: CYCLOPHOSPHAMIDE
     Indication: MANTLE CELL LYMPHOMA
     Dosage: 300 MG/M2, CYCLIC (OVER 3 HRS EVERY 12 HRS DAY 2, 3, 4)
     Route: 042
  6. DOXORUBICIN HCL [Suspect]
     Active Substance: DOXORUBICIN HYDROCHLORIDE
     Indication: MANTLE CELL LYMPHOMA
     Dosage: 16.7 MG/M2, CYCLIC (OVER 24 HRS DAILY, DAY 5, 6, 7)
     Route: 041
  7. FLUCONAZOLE. [Concomitant]
     Active Substance: FLUCONAZOLE
     Indication: PREMEDICATION
     Dosage: 100 MG, CYCLIC (DAILY FOR 10 DAYS)
     Route: 048
  8. CYTARABINE. [Suspect]
     Active Substance: CYTARABINE
     Indication: MANTLE CELL LYMPHOMA
     Dosage: 3000 MG/M2, CYCLIC (OVER 2 HRS Q 12 HRS X 4, D 3-4)
     Route: 042
  9. MESNA. [Concomitant]
     Active Substance: MESNA
     Indication: PREMEDICATION
     Dosage: 600 MG/M2, CYCLIC (OVER 24 HOURS DAILY ON DAYS 2, 3 AND 4 AND COMPLETED 12 HOURS AFTER CY)
     Route: 042
  10. DEXAMETHASONE. [Suspect]
     Active Substance: DEXAMETHASONE
     Indication: MANTLE CELL LYMPHOMA
     Dosage: 40 MG, CYCLIC (DAY 2 TO 5 AND 12 TO 15)
  11. VALACYCLOVIR [Concomitant]
     Active Substance: VALACYCLOVIR HYDROCHLORIDE
     Indication: PREMEDICATION
     Dosage: 500 MG, CYCLIC (DAILY FOR 10 DAYS)
     Route: 048
  12. LEVOFLOXACIN. [Concomitant]
     Active Substance: LEVOFLOXACIN
     Indication: PREMEDICATION
     Dosage: 500 MG, CYCLIC (DAILY FOR 10 DAYS)
     Route: 048
  13. METHOTREXATE SODIUM. [Suspect]
     Active Substance: METHOTREXATE SODIUM
     Dosage: 800 MG/M2, CYCLIC (OVER 2 HRS Q 12 HRS X 4, DAY 3-4)
     Route: 041
  14. G-CSF [Concomitant]
     Active Substance: GRANULOCYTE COLONY-STIMULATING FACTOR NOS
     Indication: PREMEDICATION
     Dosage: 5 ?G/KG, CYCLIC (DAILY FOR 10 DAYS)
     Route: 058
  15. PREDNISOLONE. [Concomitant]
     Active Substance: PREDNISOLONE
     Indication: PREMEDICATION
     Dosage: 2 GTT  EACH EYE 4X/DAY CYCLIC (FOR 7 DAYS)
     Route: 047
  16. FOLINIC ACID [Concomitant]
     Active Substance: LEUCOVORIN
     Indication: PREMEDICATION
     Dosage: 50 MG, UNK
     Route: 048
  17. CIPROFLOXACIN. [Concomitant]
     Active Substance: CIPROFLOXACIN
     Indication: PREMEDICATION
     Dosage: UNK

REACTIONS (1)
  - Pulmonary haemorrhage [Fatal]
